FAERS Safety Report 9460700 (Version 3)
Quarter: 2013Q4

REPORT INFORMATION
  Report Type: Spontaneous
  Country: None (occurrence: None)
  Receive Date: 20130813
  Receipt Date: 20131118
  Transmission Date: 20140711
  Serious: Yes (Other)
  Sender: FDA-Public Use
  Company Number: CF2510244

PATIENT
  Age: 42 Year
  Sex: Female

DRUGS (1)
  1. BLINK MOISTURE DROPS [Suspect]
     Indication: DRY EYE
     Route: 047
     Dates: start: 20130731

REACTIONS (4)
  - Eye infection bacterial [None]
  - Reaction to preservatives [None]
  - Product quality issue [None]
  - Eye abscess [None]
